FAERS Safety Report 6149104-6 (Version None)
Quarter: 2009Q2

REPORT INFORMATION
  Report Type: 
  Country: None (occurrence: None)
  Receive Date: 20090407
  Receipt Date: 20090401
  Transmission Date: 20091009
  Serious: Yes (Other)
  Sender: FDA-Public Use
  Company Number: 2009S1005265

PATIENT
  Age: 56 Year
  Sex: Male

DRUGS (14)
  1. CARVEDILOL [Suspect]
     Dosage: 12.5 MG;TWICE A DAY
  2. CYCLOSPORINE [Suspect]
     Dosage: 75 MG;TWICE A DAY
  3. RANOLAZINE [Suspect]
     Dosage: 500 MG;DAILY
  4. DILTIAZEM [Suspect]
     Dosage: 60 MG;TWICE A DAY
  5. SIMVASTATIN [Suspect]
     Dosage: 40 MG;DAILY
  6. METOPROLOL TARTRATE [Concomitant]
  7. FUROSEMIDE [Concomitant]
  8. TAMSULOSIN HCL [Concomitant]
  9. SERTRALINE HCL [Concomitant]
  10. FLUDROCORTISONE [Concomitant]
  11. CLONIDINE [Concomitant]
  12. ESOMEPRAZOLE [Concomitant]
  13. CLOPIDOGREL [Concomitant]
  14. INSULIN GLARGINE [Concomitant]

REACTIONS (5)
  - ANGINA PECTORIS [None]
  - ASPARTATE AMINOTRANSFERASE INCREASED [None]
  - CARDIAC FAILURE [None]
  - DRUG INTERACTION [None]
  - RHABDOMYOLYSIS [None]
